FAERS Safety Report 6785220-3 (Version None)
Quarter: 2010Q2

REPORT INFORMATION
  Report Type: 
  Country: None (occurrence: None)
  Receive Date: 20100622
  Receipt Date: 20100622
  Transmission Date: 20101027
  Serious: Yes (Hospitalization)
  Sender: FDA-Public Use
  Company Number: None

PATIENT
  Sex: Male
  Weight: 90.9 kg

DRUGS (2)
  1. CISPLATIN [Suspect]
     Dosage: 57 MG
     Dates: end: 20100510
  2. TAXOL [Suspect]
     Dosage: 114 MG
     Dates: end: 20100510

REACTIONS (3)
  - DYSPHAGIA [None]
  - NAUSEA [None]
  - VOMITING [None]
